FAERS Safety Report 17665559 (Version 1)
Quarter: 2020Q2

REPORT INFORMATION
  Report Type: Spontaneous
  Country: US (occurrence: US)
  Receive Date: 20200414
  Receipt Date: 20200414
  Transmission Date: 20200713
  Serious: No
  Sender: FDA-Public Use
  Company Number: None

PATIENT
  Age: 55 Year
  Sex: Male
  Weight: 90 kg

DRUGS (22)
  1. ZOFRAN [Concomitant]
     Active Substance: ONDANSETRON HYDROCHLORIDE
  2. EVZIO [Concomitant]
     Active Substance: NALOXONE HYDROCHLORIDE
  3. OMEPRAZOLE. [Concomitant]
     Active Substance: OMEPRAZOLE
  4. CANNABIDIOL [Concomitant]
     Active Substance: CANNABIDIOL
  5. VITAMIN D3 [Concomitant]
     Active Substance: CHOLECALCIFEROL
  6. XPOVIO [Suspect]
     Active Substance: SELINEXOR
     Indication: PLASMA CELL MYELOMA
     Route: 048
     Dates: start: 20200326, end: 20200414
  7. FIORINAL [Concomitant]
     Active Substance: ASPIRIN\BUTALBITAL\CAFFEINE
  8. ONDANSETRON [Concomitant]
     Active Substance: ONDANSETRON
  9. PANTOPRAZOLE [Concomitant]
     Active Substance: PANTOPRAZOLE
  10. DEXAMETHASONE. [Concomitant]
     Active Substance: DEXAMETHASONE
  11. ALLOPURINOL. [Concomitant]
     Active Substance: ALLOPURINOL
  12. ARMODAFINIL. [Concomitant]
     Active Substance: ARMODAFINIL
  13. LEVOFLOXACIN. [Concomitant]
     Active Substance: LEVOFLOXACIN
  14. FLECAINIDE ACETATE. [Concomitant]
     Active Substance: FLECAINIDE ACETATE
  15. MODAFINIL. [Concomitant]
     Active Substance: MODAFINIL
  16. AZELASTINE. [Concomitant]
     Active Substance: AZELASTINE HYDROCHLORIDE
  17. NASACORT [Concomitant]
     Active Substance: TRIAMCINOLONE ACETONIDE
  18. MAXITROL [Concomitant]
     Active Substance: DEXAMETHASONE\NEOMYCIN SULFATE\POLYMYXIN B SULFATE
  19. DICLOFENAC POTASSIUM. [Concomitant]
     Active Substance: DICLOFENAC POTASSIUM
  20. DULOXETINE. [Concomitant]
     Active Substance: DULOXETINE
  21. LORATIDINE [Concomitant]
     Active Substance: LORATADINE
  22. TESTOSTERONE. [Concomitant]
     Active Substance: TESTOSTERONE

REACTIONS (1)
  - Hospice care [None]

NARRATIVE: CASE EVENT DATE: 20200414
